FAERS Safety Report 25250272 (Version 1)
Quarter: 2025Q2

REPORT INFORMATION
  Report Type: Spontaneous
  Country: DE (occurrence: DE)
  Receive Date: 20250429
  Receipt Date: 20250429
  Transmission Date: 20250716
  Serious: Yes (Hospitalization)
  Sender: SANOFI AVENTIS
  Company Number: DE-SANOFI-02496299

PATIENT
  Sex: Female

DRUGS (1)
  1. DUPIXENT [Suspect]
     Active Substance: DUPILUMAB
     Indication: Dermatitis atopic
     Dates: start: 20240118

REACTIONS (22)
  - Feeling abnormal [Unknown]
  - Muscular weakness [Recovered/Resolved]
  - Vitamin B12 decreased [Unknown]
  - Blood creatine phosphokinase increased [Unknown]
  - Antinuclear antibody positive [Unknown]
  - Oedema peripheral [Unknown]
  - Erythema [Unknown]
  - Goitre [Unknown]
  - Tooth loss [Unknown]
  - Tooth fracture [Unknown]
  - Pruritus [Unknown]
  - Lymphadenopathy [Unknown]
  - Night sweats [Unknown]
  - Eye swelling [Unknown]
  - Lid sulcus deepened [Unknown]
  - Malabsorption [Unknown]
  - Musculoskeletal stiffness [Unknown]
  - Skin haemorrhage [Unknown]
  - Skin fissures [Unknown]
  - Yellow skin [Unknown]
  - Somnolence [Unknown]
  - Fatigue [Unknown]

NARRATIVE: CASE EVENT DATE: 20240101
